FAERS Safety Report 9158148 (Version 1)
Quarter: 2013Q1

REPORT INFORMATION
  Report Type: Spontaneous
  Country: US (occurrence: US)
  Receive Date: 20130312
  Receipt Date: 20130312
  Transmission Date: 20140127
  Serious: No
  Sender: FDA-Public Use
  Company Number: US-BAUSCH-2012BL003879

PATIENT
  Age: 64 Year
  Sex: Female

DRUGS (4)
  1. DESMOPRESSIN ACETATE [Suspect]
     Indication: DIABETES INSIPIDUS
     Dosage: 1 SPRAY; EVERY 36 HOURS; NASAL
     Route: 045
     Dates: start: 200812, end: 20120609
  2. COLECALCIFEROL [Concomitant]
  3. FISH OIL [Concomitant]
  4. ERGOCALCIFEROL [Concomitant]

REACTIONS (12)
  - Dizziness [Recovered/Resolved]
  - Confusional state [Recovered/Resolved]
  - Nausea [Recovered/Resolved]
  - Dyspnoea [Recovered/Resolved]
  - Chest discomfort [Recovered/Resolved]
  - Toothache [Recovered/Resolved]
  - Ear pain [Recovered/Resolved]
  - Oropharyngeal pain [Recovered/Resolved]
  - Hair texture abnormal [Recovered/Resolved]
  - Thirst [Recovered/Resolved]
  - Dry mouth [Recovered/Resolved]
  - Weight increased [Recovered/Resolved]
